FAERS Safety Report 4835914-1 (Version None)
Quarter: 2005Q4

REPORT INFORMATION
  Report Type: 
  Country: None (occurrence: None)
  Receive Date: 20051118
  Receipt Date: 20051110
  Transmission Date: 20060501
  Serious: Yes (Hospitalization, Other)
  Sender: FDA-Public Use
  Company Number: 2005148869

PATIENT
  Age: 91 Year
  Sex: Female

DRUGS (8)
  1. TIKOSYN [Suspect]
     Indication: ATRIAL FIBRILLATION
     Dosage: 0.25 MG ( 0.125 MG, 2 IN 1 D)
  2. ARICEPT [Concomitant]
  3. CARDIZEM [Concomitant]
  4. COUMADIN [Concomitant]
  5. BUMEX [Concomitant]
  6. KLOR-CON [Concomitant]
  7. SLOW-MAG (MAGNESIUM CHLORIDE ANHYDROUS) [Concomitant]
  8. LIPITOR [Concomitant]

REACTIONS (8)
  - ATRIAL FIBRILLATION [None]
  - BLOOD MAGNESIUM DECREASED [None]
  - BLOOD MAGNESIUM INCREASED [None]
  - BLOOD POTASSIUM DECREASED [None]
  - BLOOD POTASSIUM INCREASED [None]
  - PULMONARY THROMBOSIS [None]
  - SPINAL COLUMN STENOSIS [None]
  - THROMBOSIS [None]
